FAERS Safety Report 9495652 (Version 2)
Quarter: 2013Q4

REPORT INFORMATION
  Report Type: Spontaneous
  Country: US (occurrence: US)
  Receive Date: 20130903
  Receipt Date: 20131007
  Transmission Date: 20140711
  Serious: Yes (Hospitalization)
  Sender: FDA-Public Use
  Company Number: US-CELGENEUS-163-POMAL-13083126

PATIENT
  Age: 74 Year
  Sex: Female

DRUGS (6)
  1. POMALYST [Suspect]
     Indication: PLASMA CELL MYELOMA
     Dosage: 4 MILLIGRAM
     Route: 048
     Dates: start: 20130327, end: 20130414
  2. POMALYST [Suspect]
     Dosage: 1 MILLIGRAM
     Route: 048
     Dates: start: 201307
  3. CELLCEPT [Concomitant]
     Indication: LIVER TRANSPLANT
     Dosage: 1000 MILLIGRAM
     Route: 048
  4. PREDNISONE [Concomitant]
     Indication: LIVER TRANSPLANT
     Route: 048
  5. ALLOPURINOL [Concomitant]
     Indication: PRODUCT USED FOR UNKNOWN INDICATION
     Dosage: 100 MILLIGRAM
     Route: 048
     Dates: start: 20121227
  6. METOPROLOL [Concomitant]
     Indication: HYPERTENSION
     Dosage: 100 MILLIGRAM
     Route: 048
     Dates: start: 20121210

REACTIONS (3)
  - Intestinal perforation [Recovered/Resolved]
  - Diverticulitis [Recovered/Resolved]
  - Pathological fracture [Recovering/Resolving]
